FAERS Safety Report 11363014 (Version 1)
Quarter: 2015Q3

REPORT INFORMATION
  Report Type: Spontaneous
  Country: US (occurrence: None)
  Receive Date: 20150807
  Receipt Date: 20150807
  Transmission Date: 20151125
  Serious: Yes (Hospitalization)
  Sender: FDA-Public Use
  Company Number: None

PATIENT
  Sex: Female
  Weight: 102.3 kg

DRUGS (12)
  1. LACTULOSE. [Concomitant]
     Active Substance: LACTULOSE
  2. GABAPENTIN. [Concomitant]
     Active Substance: GABAPENTIN
  3. KRISTALOSE [Concomitant]
     Active Substance: LACTULOSE
  4. HARVONI [Suspect]
     Active Substance: LEDIPASVIR\SOFOSBUVIR
     Indication: HEPATITIS C
     Dosage: 90/400 MG
     Route: 048
     Dates: start: 20141121, end: 20150512
  5. NEXIUM [Concomitant]
     Active Substance: ESOMEPRAZOLE MAGNESIUM
  6. VITAMIN D [Concomitant]
     Active Substance: CHOLECALCIFEROL
  7. RIFAXIMIN [Concomitant]
     Active Substance: RIFAXIMIN
  8. VITAMIN C [Concomitant]
     Active Substance: ASCORBIC ACID
  9. WELLBUTRIN [Concomitant]
     Active Substance: BUPROPION HYDROCHLORIDE
  10. TRAMADOL. [Concomitant]
     Active Substance: TRAMADOL
  11. MULTIVITAMIN [Concomitant]
     Active Substance: VITAMINS
  12. PATADAY [Concomitant]
     Active Substance: OLOPATADINE HYDROCHLORIDE

REACTIONS (4)
  - Nausea [None]
  - Lactose intolerance [None]
  - Abdominal pain [None]
  - Haematemesis [None]

NARRATIVE: CASE EVENT DATE: 20141229
